FAERS Safety Report 11639773 (Version 1)
Quarter: 2015Q4

REPORT INFORMATION
  Report Type: Spontaneous
  Country: IN (occurrence: IN)
  Receive Date: 20151019
  Receipt Date: 20151019
  Transmission Date: 20160304
  Serious: Yes (Death, Other)
  Sender: FDA-Public Use
  Company Number: PHHY2015IN124574

PATIENT
  Age: 50 Year
  Sex: Female

DRUGS (8)
  1. PALBOCICLIB [Suspect]
     Active Substance: PALBOCICLIB
     Indication: BREAST CANCER METASTATIC
     Route: 065
     Dates: start: 201504, end: 201506
  2. LIPODOX [Suspect]
     Active Substance: DOXORUBICIN HYDROCHLORIDE
     Indication: BREAST CANCER METASTATIC
     Dosage: UNK
     Route: 065
     Dates: start: 201404
  3. LETROZOLE. [Suspect]
     Active Substance: LETROZOLE
     Indication: BREAST CANCER METASTATIC
     Route: 065
     Dates: start: 201504, end: 201506
  4. AFINITOR [Suspect]
     Active Substance: EVEROLIMUS
     Indication: BREAST CANCER METASTATIC
     Dosage: UNK
     Route: 065
     Dates: start: 201308
  5. AROMASIN [Suspect]
     Active Substance: EXEMESTANE
     Indication: BREAST CANCER METASTATIC
     Route: 065
     Dates: start: 201308
  6. TEGAFUR W/URACIL [Suspect]
     Active Substance: TEGAFUR\URACIL
     Indication: BREAST CANCER METASTATIC
     Route: 065
  7. LEUCOVORIN. [Suspect]
     Active Substance: LEUCOVORIN
     Indication: BREAST CANCER METASTATIC
     Dosage: UNK
     Route: 065
     Dates: start: 201410
  8. ERIBULIN [Suspect]
     Active Substance: ERIBULIN
     Indication: BREAST CANCER METASTATIC
     Route: 065
     Dates: start: 201407

REACTIONS (21)
  - Ascites [Unknown]
  - Pleural effusion [Unknown]
  - Gallbladder disorder [Unknown]
  - Hepatic failure [Fatal]
  - Venous stenosis [Unknown]
  - Bronchial wall thickening [Unknown]
  - Pleural fibrosis [Unknown]
  - Osteosclerosis [Unknown]
  - Vena cava thrombosis [Unknown]
  - Atelectasis [Unknown]
  - Pulmonary mass [Unknown]
  - Breast cancer metastatic [Unknown]
  - Lymphangiosis carcinomatosa [Unknown]
  - Metastases to bone [Unknown]
  - Jugular vein thrombosis [Unknown]
  - Hepatic lesion [Unknown]
  - Blood albumin decreased [Unknown]
  - Spinal compression fracture [Unknown]
  - Malignant neoplasm progression [Unknown]
  - Hepatomegaly [Unknown]
  - Blood sodium decreased [Unknown]
